FAERS Safety Report 5602493-0 (Version None)
Quarter: 2008Q1

REPORT INFORMATION
  Report Type: 
  Country: None (occurrence: None)
  Receive Date: 20080125
  Receipt Date: 20080124
  Transmission Date: 20080703
  Serious: Yes (Hospitalization)
  Sender: FDA-Public Use
  Company Number: A0704170A

PATIENT
  Age: 58 Year
  Sex: Female
  Weight: 56 kg

DRUGS (2)
  1. ROSIGLITAZONE [Suspect]
     Dosage: 8MG AT NIGHT
     Route: 048
     Dates: start: 20070926
  2. NO CONCURRENT MEDICATIONS [Concomitant]

REACTIONS (3)
  - ERYTHEMA [None]
  - PAIN IN EXTREMITY [None]
  - THROMBOPHLEBITIS [None]
